FAERS Safety Report 17744555 (Version 1)
Quarter: 2020Q2

REPORT INFORMATION
  Report Type: Spontaneous
  Country: US (occurrence: US)
  Receive Date: 20200504
  Receipt Date: 20200504
  Transmission Date: 20200714
  Serious: Yes (Other)
  Sender: FDA-Public Use
  Company Number: None

PATIENT
  Age: 77 Year
  Sex: Male
  Weight: 108 kg

DRUGS (6)
  1. JAKAFI [Suspect]
     Active Substance: RUXOLITINIB
     Indication: PRODUCT USED FOR UNKNOWN INDICATION
  2. ASIPRIN [Concomitant]
  3. OMEPRAZOLE. [Concomitant]
     Active Substance: OMEPRAZOLE
  4. PRAVASTATIN. [Concomitant]
     Active Substance: PRAVASTATIN
  5. JAKAFI [Concomitant]
     Active Substance: RUXOLITINIB
  6. HYDROCHLORORHIAZIDE [Concomitant]

REACTIONS (1)
  - Weight decreased [None]

NARRATIVE: CASE EVENT DATE: 20200504
